FAERS Safety Report 4467280-8 (Version None)
Quarter: 2004Q4

REPORT INFORMATION
  Report Type: 
  Country: None (occurrence: None)
  Receive Date: 20041006
  Receipt Date: 20040930
  Transmission Date: 20050328
  Serious: Yes (Other)
  Sender: FDA-Public Use
  Company Number: US-GLAXOSMITHKLINE-A0527951A

PATIENT
  Age: 84 Year
  Sex: Male

DRUGS (6)
  1. REQUIP [Suspect]
     Indication: PARKINSON'S DISEASE
     Route: 048
     Dates: start: 20030101
  2. SINEMET [Concomitant]
  3. PROSCAR [Concomitant]
  4. PRAVACHOL [Concomitant]
  5. ECOTRIN [Concomitant]
  6. MULTI-VITAMIN [Concomitant]

REACTIONS (2)
  - MACULAR DEGENERATION [None]
  - MEDICATION ERROR [None]
